FAERS Safety Report 4706302-3 (Version None)
Quarter: 2005Q3

REPORT INFORMATION
  Report Type: 
  Country: None (occurrence: None)
  Receive Date: 20050705
  Receipt Date: 20050527
  Transmission Date: 20060218
  Serious: Yes (Other)
  Sender: FDA-Public Use
  Company Number: PHBS2005JP07706

PATIENT
  Age: 60 Year
  Sex: Male
  Weight: 68 kg

DRUGS (6)
  1. SANDOSTATIN LAR [Suspect]
     Indication: ACROMEGALY
     Dosage: 20 MG/DAY
     Route: 030
     Dates: start: 20050427
  2. SANDOSTATIN [Suspect]
     Indication: ACROMEGALY
     Route: 058
  3. AMLODIN [Concomitant]
     Indication: HYPERTENSION
  4. ASPIRIN [Concomitant]
     Indication: MYOCARDIAL ISCHAEMIA
  5. LIPOVAS [Concomitant]
     Indication: HYPERLIPIDAEMIA
  6. BROMOCRIPTINE [Concomitant]
     Dosage: 6 DF/DAY
     Route: 048

REACTIONS (7)
  - CHEST PAIN [None]
  - DIZZINESS [None]
  - FAECES DISCOLOURED [None]
  - GRIP STRENGTH DECREASED [None]
  - HYPOAESTHESIA [None]
  - POLYNEUROPATHY [None]
  - VERTIGO [None]
